FAERS Safety Report 12009331 (Version 1)
Quarter: 2016Q1

REPORT INFORMATION
  Report Type: Report from Study
  Country: GB (occurrence: GB)
  Receive Date: 20160205
  Receipt Date: 20160205
  Transmission Date: 20160526
  Serious: Yes (Hospitalization)
  Sender: FDA-Public Use
  Company Number: GB-TEVA-629003ACC

PATIENT
  Age: 77 Year
  Sex: Male

DRUGS (16)
  1. CHLORPHENIRAMINE. [Concomitant]
     Active Substance: CHLORPHENIRAMINE
     Dosage: STAT DOSE. LAST DOSE PRIOR TO SAE 05/NOV/2015
     Route: 042
     Dates: start: 20150815
  2. ONDANSETRON [Concomitant]
     Active Substance: ONDANSETRON
     Indication: PROPHYLAXIS
     Dosage: 8 MILLIGRAM DAILY; LAST DOSE PRIOR TO SAE ON 05/NOV/2015
     Route: 048
     Dates: start: 20150820
  3. PREDNISOLONE. [Suspect]
     Active Substance: PREDNISOLONE
     Indication: DIFFUSE LARGE B-CELL LYMPHOMA
     Dosage: 100 MILLIGRAM DAILY; LAST DOSE PRIOR TO SAE ON 09/NOV/2015
     Route: 048
     Dates: start: 20150815
  4. FLUCONAZOLE. [Concomitant]
     Active Substance: FLUCONAZOLE
     Route: 065
     Dates: start: 20150815
  5. FUROSEMIDE. [Concomitant]
     Active Substance: FUROSEMIDE
     Indication: CARDIAC FAILURE
     Route: 065
  6. MABTHERA [Suspect]
     Active Substance: RITUXIMAB
     Indication: DIFFUSE LARGE B-CELL LYMPHOMA
     Dosage: 720 MILLIGRAM DAILY; LAST DOSE PRIOR TO SAE 05/NOV/2015 AT 2MG DAILY
     Route: 042
     Dates: start: 20150820
  7. DIGOXIN. [Concomitant]
     Active Substance: DIGOXIN
     Indication: ATRIAL FIBRILLATION
     Dosage: LAST DOSE 11/NOV/2015
     Route: 048
  8. ALLOPURINOL. [Concomitant]
     Active Substance: ALLOPURINOL
     Indication: PROPHYLAXIS
     Dosage: LAST DOSE PRIOR TO SAE 11/NOV/2015
     Route: 048
     Dates: start: 20150815
  9. FILGRASTIM [Concomitant]
     Active Substance: FILGRASTIM
     Dosage: 300 MICROGRAM DAILY; LAST DOSE PRIOR TO SAE 11/NOV/2015
     Route: 058
     Dates: start: 20150823
  10. OMEPRAZOLE. [Concomitant]
     Active Substance: OMEPRAZOLE
     Indication: PROPHYLAXIS
     Dosage: LAST DOSE 11/NOV/2015
     Route: 048
     Dates: start: 20150815
  11. LEFLUNOMIDE. [Concomitant]
     Active Substance: LEFLUNOMIDE
     Indication: RHEUMATOID ARTHRITIS
     Dosage: 20 MICROGRAM DAILY; LAST DOSE 11/NOV/2015
     Route: 048
     Dates: start: 201107
  12. VINCRISTINE [Suspect]
     Active Substance: VINCRISTINE
     Indication: DIFFUSE LARGE B-CELL LYMPHOMA
     Dosage: 2 MILLIGRAM DAILY;
     Route: 042
     Dates: start: 20150820
  13. CYCLOPHOSPHAMIDE. [Suspect]
     Active Substance: CYCLOPHOSPHAMIDE
     Indication: DIFFUSE LARGE B-CELL LYMPHOMA
     Dosage: 1400 MILLIGRAM DAILY; LAST DOSE PRIOR TO SAE 05/NOV/2015
     Route: 042
     Dates: start: 20150820
  14. INOTUZUMAB OZOGAMICIN [Suspect]
     Active Substance: INOTUZUMAB OZOGAMICIN
     Indication: DIFFUSE LARGE B-CELL LYMPHOMA
     Dosage: .016 MILLIGRAM DAILY; STAT DOSE.
     Route: 042
     Dates: start: 20150821, end: 20150918
  15. FUROSEMIDE. [Concomitant]
     Active Substance: FUROSEMIDE
     Dosage: 40 MICROGRAM DAILY; LAST DOSE 12/NOV/2015
     Route: 048
  16. METOCLOPRAMIDE. [Concomitant]
     Active Substance: METOCLOPRAMIDE
     Indication: PROPHYLAXIS
     Dosage: 10-20 MG AS NEEDED
     Route: 048
     Dates: start: 20150820

REACTIONS (1)
  - Lung infection [Recovered/Resolved]

NARRATIVE: CASE EVENT DATE: 20151112
